FAERS Safety Report 6891165-0 (Version None)
Quarter: 2010Q3

REPORT INFORMATION
  Report Type: 
  Country: None (occurrence: None)
  Receive Date: 20100731
  Receipt Date: 20090616
  Transmission Date: 20110219
  Serious: No
  Sender: FDA-Public Use
  Company Number: US-PFIZER INC-2009202772

PATIENT
  Sex: Male
  Weight: 99.8 kg

DRUGS (3)
  1. LIPITOR [Suspect]
     Indication: BLOOD CHOLESTEROL INCREASED
     Dosage: 10 MG, 1X/DAY
  2. VERAPAMIL [Concomitant]
     Dosage: 120 MG, 1X/DAY
  3. DOXAZOSIN [Concomitant]
     Dosage: 8 MG, 1X/DAY

REACTIONS (2)
  - FATIGUE [None]
  - SENSATION OF HEAVINESS [None]
